FAERS Safety Report 5225547-X (Version None)
Quarter: 2007Q1

REPORT INFORMATION
  Report Type: 
  Country: None (occurrence: None)
  Receive Date: 20070131
  Receipt Date: 20070119
  Transmission Date: 20070707
  Serious: Yes (Other)
  Sender: FDA-Public Use
  Company Number: AR-PFIZER INC-2007006238

PATIENT
  Age: 12 Year
  Sex: Female

DRUGS (7)
  1. VFEND [Suspect]
     Indication: BRONCHOPULMONARY ASPERGILLOSIS
     Dosage: DAILY DOSE:150MG
  2. BACTRIM [Concomitant]
     Dates: start: 20070110, end: 20070117
  3. CEFTRIAXONE [Concomitant]
     Dosage: DAILY DOSE:1GRAM
  4. RANITIDINE [Concomitant]
  5. ZINC SULFATE [Concomitant]
  6. AMIKACIN [Concomitant]
     Dosage: DAILY DOSE:15MG/KG
  7. CASPOFUNGIN [Concomitant]
     Dosage: DAILY DOSE:50MG

REACTIONS (1)
  - METABOLIC ALKALOSIS [None]
